FAERS Safety Report 6620406-X (Version None)
Quarter: 2010Q1

REPORT INFORMATION
  Report Type: 
  Country: None (occurrence: None)
  Receive Date: 20100309
  Receipt Date: 20100223
  Transmission Date: 20100710
  Serious: Yes (Other)
  Sender: FDA-Public Use
  Company Number: CA-GENENTECH-286340

PATIENT
  Sex: Male
  Weight: 59 kg

DRUGS (3)
  1. XOLAIR [Suspect]
     Indication: ASTHMA
     Dosage: 300 MG, Q2W
     Route: 058
     Dates: start: 20071218
  2. XOLAIR [Suspect]
     Dosage: 375 MG, Q2W
     Route: 058
     Dates: start: 20090708
  3. XOLAIR [Suspect]
     Dosage: 300 MG, Q2W
     Route: 058
     Dates: start: 20100223

REACTIONS (7)
  - ASTHMA [None]
  - CHEST PAIN [None]
  - DYSPNOEA [None]
  - NASOPHARYNGITIS [None]
  - PRODUCTIVE COUGH [None]
  - RALES [None]
  - SINUSITIS [None]
